FAERS Safety Report 8046164-2 (Version None)
Quarter: 2012Q1

REPORT INFORMATION
  Report Type: 
  Country: None (occurrence: None)
  Receive Date: 20120112
  Receipt Date: 20120112
  Transmission Date: 20120608
  Serious: Yes (Death)
  Sender: FDA-Public Use
  Company Number: None

PATIENT
  Age: 61 Year
  Sex: Male

DRUGS (10)
  1. FLUCONAZOLE [Concomitant]
  2. GABAPENTIN [Concomitant]
  3. NEUPOGEN [Concomitant]
  4. MORPHINE SULFATE [Concomitant]
  5. REVLIMID [Suspect]
     Indication: MULTIPLE MYELOMA
     Dosage: 10MG QDX14D/14D ORALLY
     Route: 048
     Dates: start: 20080901, end: 20090201
  6. REVLIMID [Suspect]
     Indication: MULTIPLE MYELOMA
     Dosage: 10MG QDX14D/14D ORALLY
     Route: 048
     Dates: start: 20110601
  7. ACYCLOVIR [Concomitant]
  8. LORAZEPAM [Concomitant]
  9. TACROLIMUS [Concomitant]
  10. DECADRON [Concomitant]

REACTIONS (3)
  - HYPOTENSION [None]
  - FALL [None]
  - ASTHENIA [None]
